FAERS Safety Report 13877290 (Version 1)
Quarter: 2017Q3

REPORT INFORMATION
  Report Type: Spontaneous
  Country: US (occurrence: US)
  Receive Date: 20170817
  Receipt Date: 20170817
  Transmission Date: 20171127
  Serious: Yes (Other)
  Sender: FDA-Public Use
  Company Number: US-TEVA-796367ACC

PATIENT
  Age: 73 Year
  Sex: Female

DRUGS (6)
  1. SUCRALFATE. [Suspect]
     Active Substance: SUCRALFATE
     Indication: DUODENAL ULCER
     Dosage: 4-5 YEARS, 1 HOUR BEFORE MEALS AND AT BEDTIME
     Route: 048
  2. PROZAC [Concomitant]
     Active Substance: FLUOXETINE HYDROCHLORIDE
  3. ALBUTEROL MDI [Concomitant]
     Active Substance: ALBUTEROL
  4. ZITHROMAX [Concomitant]
     Active Substance: AZITHROMYCIN DIHYDRATE
     Indication: BRONCHITIS CHRONIC
  5. QVAR [Concomitant]
     Active Substance: BECLOMETHASONE DIPROPIONATE
     Indication: ASTHMA
  6. LEVAQUIN [Concomitant]
     Active Substance: LEVOFLOXACIN

REACTIONS (6)
  - Blood aluminium increased [Recovered/Resolved]
  - Pneumonia [Unknown]
  - Feeling abnormal [Recovered/Resolved]
  - Nausea [Unknown]
  - Dizziness [Recovered/Resolved]
  - Abdominal pain upper [Unknown]

NARRATIVE: CASE EVENT DATE: 201704
